FAERS Safety Report 8530505-3 (Version None)
Quarter: 2012Q3

REPORT INFORMATION
  Report Type: 
  Country: None (occurrence: None)
  Receive Date: 20120723
  Receipt Date: 20120718
  Transmission Date: 20120928
  Serious: Yes (Death, Other)
  Sender: FDA-Public Use
  Company Number: US-CELGENEUS-163-21880-12062473

PATIENT
  Sex: Male

DRUGS (28)
  1. CEPHALEXIN [Concomitant]
     Route: 065
  2. AMLODIPINE BESYLATE [Concomitant]
     Dosage: 5 MILLIGRAM
     Route: 048
     Dates: start: 20110708
  3. AVAPRO [Concomitant]
     Dosage: 300 MILLIGRAM
     Route: 048
  4. SEROQUEL [Concomitant]
     Dosage: 25 MILLIGRAM
     Route: 065
  5. LOVASTATIN [Concomitant]
     Dosage: 40 MILLIGRAM
     Route: 048
  6. FUROSEMIDE [Concomitant]
     Dosage: 80 MILLIGRAM
     Route: 048
     Dates: start: 20101001
  7. HYDROCODONE BITARTRATE + ACETAMINOPHEN [Concomitant]
     Dosage: 10-325MG
     Route: 065
     Dates: start: 20110708
  8. POTASSIUM CHLORIDE [Concomitant]
     Route: 065
  9. HYDRALAZINE HCL [Concomitant]
     Dosage: 150 MILLIGRAM
     Route: 048
     Dates: start: 20101001
  10. ALPRAZOLAM [Concomitant]
     Dosage: .25 MILLIGRAM
     Route: 065
  11. EFFEXOR XR [Concomitant]
     Dosage: 75 MILLIGRAM
     Route: 065
  12. LOSARTAN POTASSIUM [Concomitant]
     Route: 065
  13. DEXAMETHASONE [Concomitant]
     Dosage: 40 MILLIGRAM
     Route: 048
     Dates: start: 20111222
  14. FUROSEMIDE [Concomitant]
     Dosage: 40 MILLIGRAM
     Route: 048
     Dates: start: 20101001
  15. HUMALOG KWIKPEN [Concomitant]
     Dosage: SLIDING SCALE
     Route: 065
  16. B COMPLEX-B12 [Concomitant]
     Route: 065
  17. CHEW-12 [Concomitant]
     Route: 065
  18. METOPROLOL TARTRATE [Concomitant]
     Dosage: 300 MILLIGRAM
     Route: 065
     Dates: start: 20110708
  19. RITALIN [Concomitant]
     Dosage: 10 MILLIGRAM
     Route: 065
     Dates: start: 20110407
  20. REVLIMID [Suspect]
     Dosage: 25 MILLIGRAM
     Route: 048
     Dates: start: 20111230, end: 20120101
  21. DEXAMETHASONE [Concomitant]
     Dosage: 40 MILLIGRAM
     Route: 048
     Dates: start: 20111214
  22. LANTUS [Concomitant]
     Dosage: 30 UNITS
     Route: 065
  23. POTASSIUM CHLORIDE [Concomitant]
     Dosage: 40 MILLIEQUIVALENTS
     Route: 048
     Dates: start: 20120112
  24. ASCORBIC ACID [Concomitant]
     Dosage: 1000 MILLIGRAM
     Route: 065
  25. OXYCONTIN [Concomitant]
     Dosage: 60 MILLIGRAM
     Route: 065
     Dates: start: 20101001
  26. TRAZODONE HCL [Concomitant]
     Dosage: 1-2
     Route: 065
     Dates: start: 20110623
  27. JANTOVEN [Concomitant]
     Dosage: 2.5 MILLIGRAM
     Route: 048
     Dates: start: 20110623
  28. SOMA [Concomitant]
     Dosage: 350 MILLIGRAM
     Route: 065

REACTIONS (16)
  - HYPERKALAEMIA [None]
  - CARDIOMEGALY [None]
  - BLOOD PRESSURE INCREASED [None]
  - URINARY TRACT INFECTION [None]
  - PNEUMONIA [None]
  - SEPSIS [None]
  - HAEMOLYSIS [None]
  - VENTRICULAR FIBRILLATION [None]
  - HYPOKALAEMIA [None]
  - NAUSEA [None]
  - VOMITING [None]
  - ABDOMINAL PAIN [None]
  - BLOOD CREATINE PHOSPHOKINASE INCREASED [None]
  - PNEUMOTHORAX [None]
  - SUBCUTANEOUS ABSCESS [None]
  - DIARRHOEA [None]
